FAERS Safety Report 24691673 (Version 1)
Quarter: 2024Q4

REPORT INFORMATION
  Report Type: Spontaneous
  Country: AR (occurrence: AR)
  Receive Date: 20241203
  Receipt Date: 20241203
  Transmission Date: 20250115
  Serious: No
  Sender: PFIZER
  Company Number: AR-PFIZER INC-202400309773

PATIENT
  Age: 24 Year
  Sex: Female

DRUGS (1)
  1. GENOTROPIN [Suspect]
     Active Substance: SOMATROPIN
     Indication: Prader-Willi syndrome
     Dosage: 1.6 MG, 6 TIMES PER WEEK
     Dates: start: 20070605, end: 20241121

REACTIONS (4)
  - Drug dose omission by device [Unknown]
  - Off label use [Unknown]
  - Device information output issue [Unknown]
  - Device mechanical issue [Unknown]

NARRATIVE: CASE EVENT DATE: 20241115
